FAERS Safety Report 7919096-5 (Version None)
Quarter: 2011Q4

REPORT INFORMATION
  Report Type: 
  Country: None (occurrence: None)
  Receive Date: 20111116
  Receipt Date: 20111115
  Transmission Date: 20120403
  Serious: Yes (Death, Hospitalization)
  Sender: FDA-Public Use
  Company Number: US-AMGEN-USACT2011058738

PATIENT
  Age: 81 Year
  Sex: Male

DRUGS (10)
  1. FISH OIL [Concomitant]
     Dosage: 1000 MG, QD
     Route: 048
  2. DENOSUMAB [Suspect]
     Indication: METASTASES TO BONE
     Dosage: 70 MG, QMO
     Route: 058
     Dates: start: 20100310
  3. CALCIUM + VITAMIN D [Concomitant]
  4. FUROSEMIDE [Concomitant]
     Dosage: 80 MG, UNK
     Route: 048
  5. ASCORBIC ACID [Concomitant]
     Dosage: 500 MG, UNK
  6. MECLIZINE [Concomitant]
     Dosage: UNK UNK, PRN
  7. IRON [Concomitant]
     Dosage: 325 MG, UNK
     Route: 048
  8. MULTI-VITAMIN [Concomitant]
     Dosage: UNK UNK, QD
  9. LOTREL [Concomitant]
     Dosage: 40 MG, UNK
     Route: 048
  10. ASPIRIN [Concomitant]
     Dosage: 325 MG, UNK
     Route: 048

REACTIONS (1)
  - DYSPNOEA [None]
